FAERS Safety Report 24881769 (Version 1)
Quarter: 2025Q1

REPORT INFORMATION
  Report Type: Report from Study
  Country: CA (occurrence: CA)
  Receive Date: 20250124
  Receipt Date: 20250124
  Transmission Date: 20250409
  Serious: Yes (Hospitalization)
  Sender: SAMSUNG BIOEPIS
  Company Number: CA-SAMSUNG BIOEPIS-SB-2025-02355

PATIENT
  Age: 13 Year
  Sex: Male

DRUGS (2)
  1. RENFLEXIS [Suspect]
     Active Substance: INFLIXIMAB-ABDA
     Indication: Colitis ulcerative
     Route: 042
     Dates: start: 20220220
  2. SODIUM CHLORIDE [Concomitant]
     Active Substance: SODIUM CHLORIDE
     Indication: Product used for unknown indication

REACTIONS (5)
  - Dyspnoea [Unknown]
  - Chest pain [Unknown]
  - Oxygen therapy [Unknown]
  - Cough [Unknown]
  - Off label use [Unknown]

NARRATIVE: CASE EVENT DATE: 20250116
